FAERS Safety Report 26101372 (Version 1)
Quarter: 2025Q4

REPORT INFORMATION
  Report Type: Spontaneous
  Country: CA (occurrence: CA)
  Receive Date: 20251128
  Receipt Date: 20251128
  Transmission Date: 20260118
  Serious: Yes (Death)
  Sender: TEVA
  Company Number: CA-TEVA-VS-3397603

PATIENT
  Sex: Female

DRUGS (9)
  1. BENDAMUSTINE [Suspect]
     Active Substance: BENDAMUSTINE
     Indication: Chemotherapy
     Dosage: BENDAMUSTINE HYDROCHLORIDE
     Route: 065
  2. TRUXIMA [Suspect]
     Active Substance: RITUXIMAB-ABBS
     Indication: Chemotherapy
     Route: 065
  3. TRUXIMA [Suspect]
     Active Substance: RITUXIMAB-ABBS
     Indication: Chemotherapy
     Dosage: TRUXIMA SINGLE-DOSE VIAL, DOSE FORM : SOLUTION INTRAVENOUS
     Route: 042
  4. TRUXIMA [Suspect]
     Active Substance: RITUXIMAB-ABBS
     Indication: Chemotherapy
     Route: 065
  5. OLANZAPINE [Concomitant]
     Active Substance: OLANZAPINE
     Indication: Product used for unknown indication
     Dosage: DOSE FORM : NOT SPECIFIED
     Route: 065
  6. VITAMIN D [Concomitant]
     Active Substance: VITAMIN D NOS
     Indication: Product used for unknown indication
     Dosage: DOSE FORM :  NOT SPECIFIED
     Route: 065
  7. FINGOLIMOD [Concomitant]
     Active Substance: FINGOLIMOD
     Indication: Multiple sclerosis
     Route: 065
  8. LORAZEPAM [Concomitant]
     Active Substance: LORAZEPAM
     Indication: Product used for unknown indication
     Dosage: DOSE FORM  : NOT SPECIFIED
     Route: 065
  9. ALLOPURINOL [Concomitant]
     Active Substance: ALLOPURINOL
     Indication: Product used for unknown indication
     Route: 065

REACTIONS (2)
  - Death [Fatal]
  - Intentional product use issue [Fatal]
